FAERS Safety Report 8773180 (Version 3)
Quarter: 2013Q2

REPORT INFORMATION
  Report Type: Report from Study
  Country: US (occurrence: US)
  Receive Date: 20120907
  Receipt Date: 20130403
  Transmission Date: 20140414
  Serious: Yes (Hospitalization, Other)
  Sender: FDA-Public Use
  Company Number: US-ROCHE-1119022

PATIENT
  Age: 42 Year
  Sex: Male

DRUGS (11)
  1. PEG-INTERFERON ALFA 2A [Suspect]
     Indication: HEPATITIS C
     Route: 058
     Dates: start: 20120120, end: 20120413
  2. RIBAVIRIN [Suspect]
     Indication: HEPATITIS C
     Route: 048
     Dates: start: 20120120, end: 20120416
  3. INX-189 (HCV POLYMERASE INHIBITOR) [Suspect]
     Indication: HEPATITIS C
     Route: 048
     Dates: start: 20120120, end: 20120413
  4. METOPROLOLTARTRAT [Concomitant]
  5. IBUPROFEN [Concomitant]
     Indication: HEADACHE
  6. ALPRAZOLAM [Concomitant]
     Indication: ANXIETY
  7. TRAMADOL [Concomitant]
  8. ESCITALOPRAM [Concomitant]
  9. CORTISONE CREAM [Concomitant]
  10. SERTRALINE [Concomitant]
  11. LISINOPRIL [Concomitant]

REACTIONS (4)
  - Syncope [Recovered/Resolved]
  - Ejection fraction decreased [Recovering/Resolving]
  - Aspartate aminotransferase increased [None]
  - Alanine aminotransferase increased [None]
